FAERS Safety Report 17605811 (Version 1)
Quarter: 2020Q1

REPORT INFORMATION
  Report Type: Report from Study
  Country: GH (occurrence: GH)
  Receive Date: 20200331
  Receipt Date: 20200331
  Transmission Date: 20200409
  Serious: Yes (Death, Hospitalization)
  Sender: FDA-Public Use
  Company Number: GH-JNJFOC-20200331441

PATIENT
  Age: 85 Year
  Sex: Male

DRUGS (1)
  1. ABIRATERONE ACETATE. [Suspect]
     Active Substance: ABIRATERONE ACETATE
     Indication: PROSTATE CANCER
     Route: 048
     Dates: start: 20200305, end: 20200311

REACTIONS (3)
  - Hypertension [Unknown]
  - Death [Fatal]
  - Medical device pain [Unknown]

NARRATIVE: CASE EVENT DATE: 20200309
